FAERS Safety Report 18478284 (Version 2)
Quarter: 2020Q4

REPORT INFORMATION
  Report Type: Spontaneous
  Country: US (occurrence: US)
  Receive Date: 20201109
  Receipt Date: 20201120
  Transmission Date: 20210114
  Serious: Yes (Death)
  Sender: FDA-Public Use
  Company Number: US-AUROBINDO-AUR-APL-2020-054771

PATIENT
  Age: 74 Year
  Sex: Male

DRUGS (1)
  1. CLOZAPINE TABLET [Suspect]
     Active Substance: CLOZAPINE
     Indication: PRODUCT USED FOR UNKNOWN INDICATION
     Dosage: UNK
     Route: 048

REACTIONS (3)
  - Neutrophilia [Not Recovered/Not Resolved]
  - Parkinson^s disease [Fatal]
  - Ulcer [Fatal]

NARRATIVE: CASE EVENT DATE: 20200127
